FAERS Safety Report 21566039 (Version 1)
Quarter: 2022Q4

REPORT INFORMATION
  Report Type: Report from Study
  Country: CA (occurrence: CA)
  Receive Date: 20221108
  Receipt Date: 20221108
  Transmission Date: 20230113
  Serious: Yes (Death)
  Sender: FDA-Public Use
  Company Number: CA-MYLANLABS-2022M1122064

PATIENT
  Sex: Male

DRUGS (1)
  1. FULPHILA [Suspect]
     Active Substance: PEGFILGRASTIM-JMDB
     Indication: Febrile neutropenia
     Dosage: UNK
     Route: 065
     Dates: start: 20220615, end: 2022

REACTIONS (1)
  - Death [Fatal]
